FAERS Safety Report 22759625 (Version 2)
Quarter: 2024Q2

REPORT INFORMATION
  Report Type: Report from Study
  Country: US (occurrence: US)
  Receive Date: 20230728
  Receipt Date: 20240417
  Transmission Date: 20240715
  Serious: Yes (Other)
  Sender: FDA-Public Use
  Company Number: US-TAKEDA-2023TUS041821

PATIENT
  Age: 53 Year
  Sex: Female

DRUGS (2)
  1. HUMAN IMMUNOGLOBULIN G [Suspect]
     Active Substance: HUMAN IMMUNOGLOBULIN G
     Indication: Primary immunodeficiency syndrome
     Dosage: UNK
     Route: 058
  2. HUMAN IMMUNOGLOBULIN G [Suspect]
     Active Substance: HUMAN IMMUNOGLOBULIN G
     Indication: Hypogammaglobulinaemia

REACTIONS (8)
  - Cellulitis [Unknown]
  - Bone pain [Unknown]
  - Animal scratch [Unknown]
  - Subcutaneous haematoma [Unknown]
  - Influenza like illness [Unknown]
  - Myalgia [Unknown]
  - Infusion site pain [Unknown]
  - Pain [Unknown]

NARRATIVE: CASE EVENT DATE: 20230522
